FAERS Safety Report 7442350-0 (Version None)
Quarter: 2011Q2

REPORT INFORMATION
  Report Type: 
  Country: None (occurrence: None)
  Receive Date: 20110425
  Receipt Date: 20110425
  Transmission Date: 20111010
  Serious: No
  Sender: FDA-Public Use
  Company Number: None

PATIENT
  Age: 41 Year
  Sex: Female
  Weight: 70 kg

DRUGS (1)
  1. TYLENOL COLD [Suspect]
     Indication: NASOPHARYNGITIS
     Dosage: 2 1 PO
     Route: 048
     Dates: start: 20110423, end: 20110423

REACTIONS (3)
  - ABASIA [None]
  - VERTIGO [None]
  - DIZZINESS [None]
